FAERS Safety Report 13542795 (Version 1)
Quarter: 2017Q2

REPORT INFORMATION
  Report Type: Spontaneous
  Country: US (occurrence: US)
  Receive Date: 20170512
  Receipt Date: 20170512
  Transmission Date: 20170830
  Serious: No
  Sender: FDA-Public Use
  Company Number: US-ROCHE-756326

PATIENT
  Age: 7 Year
  Sex: Female

DRUGS (3)
  1. BEVACIZUMAB [Suspect]
     Active Substance: BEVACIZUMAB
     Indication: MEDULLOBLASTOMA
     Dosage: TAKEN FOR 35MONTHS
     Route: 042
  2. IRINOTECAN [Suspect]
     Active Substance: IRINOTECAN
     Indication: MEDULLOBLASTOMA
     Dosage: TAKEN FOR 35MONTHS
     Route: 042
  3. TEMOZOLOMIDE. [Suspect]
     Active Substance: TEMOZOLOMIDE
     Indication: MEDULLOBLASTOMA
     Dosage: FREQUENCY:DAILY FOR FIVE CONSECUTIVE DAYS OF EVERY MONTH
     Route: 048

REACTIONS (5)
  - Alopecia [Unknown]
  - Neutropenia [Unknown]
  - Diarrhoea [Unknown]
  - Pyrexia [Unknown]
  - Thrombocytopenia [Unknown]
